FAERS Safety Report 20035086 (Version 2)
Quarter: 2021Q4

REPORT INFORMATION
  Report Type: Spontaneous
  Country: US (occurrence: US)
  Receive Date: 20211104
  Receipt Date: 20211209
  Transmission Date: 20220303
  Serious: No
  Sender: FDA-Public Use
  Company Number: US-KARYOPHARM-2021KPT001327

PATIENT

DRUGS (10)
  1. XPOVIO [Suspect]
     Active Substance: SELINEXOR
     Indication: Brain neoplasm malignant
     Dosage: 80 MG, WEEKLY
     Route: 048
     Dates: start: 20211013
  2. NORVASC [Concomitant]
     Active Substance: AMLODIPINE BESYLATE
  3. DECADRON [Concomitant]
     Active Substance: DEXAMETHASONE
  4. VIMPAT [Concomitant]
     Active Substance: LACOSAMIDE
  5. LACTULOSE [Concomitant]
     Active Substance: LACTULOSE
  6. KEPPRA [Concomitant]
     Active Substance: LEVETIRACETAM
  7. EFFEXOR XR [Concomitant]
     Active Substance: VENLAFAXINE HYDROCHLORIDE
  8. ZOFRAN [Concomitant]
     Active Substance: ONDANSETRON HYDROCHLORIDE
  9. AVASTIN [Concomitant]
     Active Substance: BEVACIZUMAB
     Route: 042
  10. LOMUSTINE [Concomitant]
     Active Substance: LOMUSTINE

REACTIONS (5)
  - Nausea [Not Recovered/Not Resolved]
  - Vomiting [Not Recovered/Not Resolved]
  - Fatigue [Unknown]
  - Asthenia [Unknown]
  - Off label use [Unknown]

NARRATIVE: CASE EVENT DATE: 20210101
